FAERS Safety Report 5914761-3 (Version None)
Quarter: 2008Q4

REPORT INFORMATION
  Report Type: 
  Country: None (occurrence: None)
  Receive Date: 20081010
  Receipt Date: 20081009
  Transmission Date: 20090506
  Serious: Yes (Hospitalization, Disabling, Other)
  Sender: FDA-Public Use
  Company Number: GB-BRISTOL-MYERS SQUIBB COMPANY-14336259

PATIENT
  Age: 37 Year
  Sex: Male

DRUGS (4)
  1. CISPLATIN [Suspect]
     Indication: SEMINOMA
  2. CISPLATIN [Suspect]
     Indication: CHEMOTHERAPY
  3. ETOPOSIDE [Suspect]
     Indication: SEMINOMA
  4. BLEOMYCIN SULFATE [Suspect]
     Indication: SEMINOMA

REACTIONS (9)
  - ARTERIAL THROMBOSIS [None]
  - DELIRIUM [None]
  - HYPOAESTHESIA [None]
  - NEUROTOXICITY [None]
  - NEUTROPENIC SEPSIS [None]
  - PAIN IN EXTREMITY [None]
  - PERIPHERAL ISCHAEMIA [None]
  - PYREXIA [None]
  - RASH [None]
